FAERS Safety Report 17767330 (Version 1)
Quarter: 2020Q2

REPORT INFORMATION
  Report Type: Spontaneous
  Country: GB (occurrence: GB)
  Receive Date: 20200511
  Receipt Date: 20200511
  Transmission Date: 20200714
  Serious: Yes (Hospitalization, Other)
  Sender: FDA-Public Use
  Company Number: GB-JNJFOC-20200210441

PATIENT
  Sex: Male

DRUGS (1)
  1. INFLIXIMAB, RECOMBINANT [Suspect]
     Active Substance: INFLIXIMAB
     Indication: PUSTULAR PSORIASIS
     Route: 042

REACTIONS (15)
  - Pustular psoriasis [Unknown]
  - Tachycardia [Unknown]
  - Hyperlactacidaemia [Unknown]
  - Renal impairment [Unknown]
  - Burning sensation [Unknown]
  - Leukocytosis [Unknown]
  - Burn infection [Recovered/Resolved]
  - Hepatic function abnormal [Recovered/Resolved]
  - Product use in unapproved indication [Unknown]
  - Hypotension [Unknown]
  - Tachypnoea [Unknown]
  - Cholecystitis [Unknown]
  - Inflammatory marker increased [Recovering/Resolving]
  - Off label use [Unknown]
  - Dermatitis exfoliative generalised [Unknown]
